FAERS Safety Report 22930487 (Version 3)
Quarter: 2023Q4

REPORT INFORMATION
  Report Type: Spontaneous
  Country: US (occurrence: US)
  Receive Date: 20230911
  Receipt Date: 20231107
  Transmission Date: 20240110
  Serious: No
  Sender: FDA-Public Use
  Company Number: US-PFIZER INC-PV202300152937

PATIENT
  Age: 45 Year
  Sex: Male
  Weight: 127.01 kg

DRUGS (3)
  1. LORBRENA [Suspect]
     Active Substance: LORLATINIB
     Indication: Lung neoplasm malignant
     Dosage: 100 MG, DAILY
     Route: 048
     Dates: start: 202112
  2. LORBRENA [Suspect]
     Active Substance: LORLATINIB
     Indication: Meningitis leptospiral
  3. LORBRENA [Suspect]
     Active Substance: LORLATINIB
     Indication: Brain cancer metastatic

REACTIONS (1)
  - Memory impairment [Unknown]
